FAERS Safety Report 17457642 (Version 1)
Quarter: 2020Q1

REPORT INFORMATION
  Report Type: Spontaneous
  Country: SG (occurrence: SG)
  Receive Date: 20200225
  Receipt Date: 20200225
  Transmission Date: 20200409
  Serious: Yes (Other)
  Sender: FDA-Public Use
  Company Number: SG-JNJFOC-20180918825

PATIENT
  Sex: Male

DRUGS (2)
  1. PREDNISOLONE. [Concomitant]
     Active Substance: PREDNISOLONE
     Indication: PROSTATE CANCER METASTATIC
  2. ZYTIGA [Suspect]
     Active Substance: ABIRATERONE ACETATE
     Indication: PROSTATE CANCER METASTATIC
     Route: 048

REACTIONS (20)
  - Skin toxicity [Unknown]
  - Toxicity to various agents [Unknown]
  - Hypertension [Unknown]
  - Fatigue [Unknown]
  - Gastrointestinal disorder [Unknown]
  - Musculoskeletal disorder [Unknown]
  - Hyponatraemia [Unknown]
  - Renal disorder [Unknown]
  - Hypotension [Unknown]
  - Incontinence [Unknown]
  - Hypokalaemia [Unknown]
  - Hypophosphataemia [Unknown]
  - Urinary tract disorder [Unknown]
  - Fluid retention [Unknown]
  - Hepatotoxicity [Unknown]
  - Adverse event [Unknown]
  - Lethargy [Unknown]
  - Pyrexia [Unknown]
  - Respiratory disorder [Unknown]
  - Cardiac disorder [Unknown]
